FAERS Safety Report 5302061-4 (Version None)
Quarter: 2007Q2

REPORT INFORMATION
  Report Type: 
  Country: None (occurrence: None)
  Receive Date: 20070416
  Receipt Date: 20070416
  Transmission Date: 20071010
  Serious: No
  Sender: FDA-Public Use
  Company Number: None

PATIENT
  Sex: Male
  Weight: 85.7298 kg

DRUGS (2)
  1. OXYMETAZOLINE HCL [Suspect]
     Indication: NASAL CONGESTION
     Dosage: 2-3 SPRAYS IN EACH NOSTRIL   { 10-12 HRS FREQUE    NASAL
     Route: 045
     Dates: start: 20070115, end: 20070117
  2. OXYMETAZOLINE HCL [Suspect]
     Indication: VIRAL INFECTION
     Dosage: 2-3 SPRAYS IN EACH NOSTRIL   { 10-12 HRS FREQUE    NASAL
     Route: 045
     Dates: start: 20070115, end: 20070117

REACTIONS (2)
  - AGEUSIA [None]
  - ANOSMIA [None]
